FAERS Safety Report 5304839-X (Version None)
Quarter: 2007Q2

REPORT INFORMATION
  Report Type: 
  Country: None (occurrence: None)
  Receive Date: 20070423
  Receipt Date: 20070418
  Transmission Date: 20071010
  Serious: Yes (Hospitalization, Other)
  Sender: FDA-Public Use
  Company Number: GB-BOEHRINGER INGELHEIM PHARMACEUTICALS, INC.-2007-UK-01265UK

PATIENT
  Age: 6 Year
  Sex: Male
  Weight: 20 kg

DRUGS (11)
  1. CLONIDINE [Suspect]
     Indication: SEDATION
     Dosage: 1MCG/KG 1 HOURS
     Route: 042
     Dates: start: 20040330, end: 20070402
  2. AMOXICILLIN [Concomitant]
     Indication: INFECTION
     Route: 042
     Dates: start: 20070330
  3. BACLOFEN [Concomitant]
     Indication: MUSCLE SPASTICITY
     Dosage: GASTROENTERNAL USE
     Dates: start: 20040101
  4. GENTAMICIN [Concomitant]
     Indication: INFECTION
     Route: 042
     Dates: start: 20070330
  5. MELATONIN [Concomitant]
     Indication: SEDATION
     Route: 048
     Dates: start: 20070221
  6. METRONIDAZOLE [Concomitant]
     Indication: INFECTION
     Route: 042
     Dates: start: 20070330
  7. MIDAZOLAM HCL [Concomitant]
     Indication: SEDATION
     Dosage: 0.1MCG/KG PER HOUR
     Route: 042
     Dates: start: 20070329
  8. MIDAZOLAM HCL [Concomitant]
     Dosage: 0.1MCG/KG PER HOUR
     Route: 042
     Dates: start: 20070329
  9. MORPHINE [Concomitant]
     Route: 042
     Dates: start: 20070329
  10. OMEPRAZOLE [Concomitant]
     Dosage: 40 MCG/KG PER HOUR
     Route: 042
     Dates: start: 20070330
  11. RANITIDINE [Concomitant]
     Route: 042
     Dates: start: 20070330

REACTIONS (1)
  - HYPERTENSION [None]
